FAERS Safety Report 9753825 (Version 1)
Quarter: 2013Q4

REPORT INFORMATION
  Report Type: Spontaneous
  Country: FR (occurrence: FR)
  Receive Date: 20131213
  Receipt Date: 20131213
  Transmission Date: 20140711
  Serious: Yes (Hospitalization)
  Sender: FDA-Public Use
  Company Number: PHHY2013FR145751

PATIENT
  Age: 72 Year
  Sex: Male

DRUGS (8)
  1. TAREG [Suspect]
     Dosage: UNK UKN, UNK
     Route: 048
  2. BISOPROLOL [Suspect]
     Dosage: UNK UKN, UNK
     Route: 048
  3. INEXIUM [Suspect]
     Dosage: UNK UKN, UNK
     Route: 048
     Dates: start: 201305
  4. FRAGMIN [Suspect]
     Dosage: UNK UKN, UNK
     Route: 058
     Dates: start: 201309
  5. DAFALGAN [Suspect]
     Dosage: UNK UKN, UNK
     Route: 048
  6. AVODART [Suspect]
     Dosage: UNK UKN, UNK
     Route: 048
  7. XATRAL [Suspect]
     Dosage: UNK UKN, UNK
     Route: 048
  8. SPASFON [Concomitant]

REACTIONS (1)
  - Thrombocytopenia [Not Recovered/Not Resolved]
